FAERS Safety Report 4485242-1 (Version None)
Quarter: 2004Q4

REPORT INFORMATION
  Report Type: 
  Country: None (occurrence: None)
  Receive Date: 20041026
  Receipt Date: 20040908
  Transmission Date: 20050328
  Serious: No
  Sender: FDA-Public Use
  Company Number: US-BRISTOL-MYERS SQUIBB COMPANY-12696399

PATIENT
  Age: 69 Year
  Sex: Female
  Weight: 86 kg

DRUGS (7)
  1. GLUCOPHAGE XR [Suspect]
     Indication: DIABETES MELLITUS MANAGEMENT
     Route: 048
  2. AMARYL [Concomitant]
  3. DITROPAN [Concomitant]
  4. DETROL [Concomitant]
  5. MULTIVITAMIN [Concomitant]
  6. ACIDOPHILUS [Concomitant]
  7. VITAMIN B-12 [Concomitant]

REACTIONS (2)
  - HYPOAESTHESIA [None]
  - TREMOR [None]
